FAERS Safety Report 13159620 (Version 4)
Quarter: 2017Q1

REPORT INFORMATION
  Report Type: Spontaneous
  Country: GB (occurrence: GB)
  Receive Date: 20170127
  Receipt Date: 20170317
  Transmission Date: 20170428
  Serious: Yes (Other)
  Sender: FDA-Public Use
  Company Number: GB-SA-2017SA011312

PATIENT
  Age: 22 Month
  Sex: Male

DRUGS (2)
  1. MYOZYME [Suspect]
     Active Substance: ALGLUCOSIDASE ALFA
     Indication: GLYCOGEN STORAGE DISEASE TYPE II
     Route: 041
     Dates: start: 20161005
  2. PARACETAMOL [Concomitant]
     Active Substance: ACETAMINOPHEN

REACTIONS (10)
  - Cough [Recovering/Resolving]
  - Lower respiratory tract infection [Unknown]
  - Respiratory rate increased [Recovering/Resolving]
  - Body temperature increased [Recovering/Resolving]
  - Heart rate increased [Recovering/Resolving]
  - Increased upper airway secretion [Not Recovered/Not Resolved]
  - Dyspnoea [Recovering/Resolving]
  - Oxygen saturation decreased [Recovering/Resolving]
  - Sneezing [Recovering/Resolving]
  - Feeling cold [Unknown]
